FAERS Safety Report 14660310 (Version 1)
Quarter: 2018Q1

REPORT INFORMATION
  Report Type: Spontaneous
  Country: US (occurrence: US)
  Receive Date: 20180317
  Receipt Date: 20180317
  Transmission Date: 20180509
  Serious: Yes (Other)
  Sender: FDA-Public Use
  Company Number: None

PATIENT
  Sex: Female

DRUGS (9)
  1. BISOPROL [Concomitant]
     Active Substance: BISOPROLOL FUMARATE
  2. DULOXETINE. [Concomitant]
     Active Substance: DULOXETINE
  3. BUPROPN [Concomitant]
  4. RIZATRIPTAN. [Concomitant]
     Active Substance: RIZATRIPTAN
  5. COLCHICINE. [Concomitant]
     Active Substance: COLCHICINE
  6. HUMIRA [Suspect]
     Active Substance: ADALIMUMAB
     Indication: RHEUMATOID ARTHRITIS
     Dosage: ?          OTHER FREQUENCY:QOW;?
     Route: 058
     Dates: start: 20140130
  7. BOTOX [Suspect]
     Active Substance: ONABOTULINUMTOXINA
     Indication: MUSCULOSKELETAL DISCOMFORT
     Dosage: ?          OTHER FREQUENCY:Q3M;?
     Route: 030
     Dates: start: 20170822
  8. ACETAZOLAMID [Concomitant]
     Active Substance: ACETAZOLAMIDE
  9. LAVOFLOXACIN [Concomitant]

REACTIONS (4)
  - Loss of personal independence in daily activities [None]
  - Infection [None]
  - Impaired work ability [None]
  - Drug dose omission [None]
